FAERS Safety Report 4748487-9 (Version None)
Quarter: 2005Q3

REPORT INFORMATION
  Report Type: 
  Country: None (occurrence: None)
  Receive Date: 20050818
  Receipt Date: 20050818
  Transmission Date: 20060218
  Serious: Yes (Hospitalization)
  Sender: FDA-Public Use
  Company Number: None

PATIENT
  Age: 79 Year
  Sex: Male
  Weight: 64.4108 kg

DRUGS (6)
  1. AVASTIN [Suspect]
     Indication: COLON CANCER METASTATIC
     Dosage: 340 MG IV
     Route: 042
     Dates: start: 20050601
  2. AVASTIN [Suspect]
     Indication: COLON CANCER METASTATIC
     Dosage: 340 MG IV
     Route: 042
     Dates: start: 20050615
  3. OXALIPLATIN [Concomitant]
  4. FLUOROURACIL [Concomitant]
  5. LEUCOVORIN [Concomitant]
  6. DOLASETRON [Concomitant]

REACTIONS (4)
  - HEMIPLEGIA [None]
  - INFUSION RELATED REACTION [None]
  - SPEECH DISORDER [None]
  - TRANSIENT ISCHAEMIC ATTACK [None]
